FAERS Safety Report 9494392 (Version 2)
Quarter: 2013Q3

REPORT INFORMATION
  Report Type: Spontaneous
  Country: US (occurrence: US)
  Receive Date: 20130903
  Receipt Date: 20130903
  Transmission Date: 20140515
  Serious: No
  Sender: FDA-Public Use
  Company Number: US-009507513-2012SP023377

PATIENT
  Sex: Male
  Weight: 68.27 kg

DRUGS (7)
  1. VICTRELIS [Suspect]
     Indication: CHRONIC HEPATITIS C
     Dosage: 200 MG, Q8H
     Route: 048
  2. REBETOL [Suspect]
     Indication: CHRONIC HEPATITIS C
     Dosage: 200 MG, BID
     Route: 048
  3. PEGASYS [Suspect]
     Indication: CHRONIC HEPATITIS C
     Dosage: 180 MCG/5ML, QW
  4. CYANOCOBALAMIN [Concomitant]
     Dosage: 5000 MG, DAILY
  5. FOLIC ACID [Concomitant]
     Dosage: 400 MICROGRAM, DAILY
  6. UBIDECARENONE [Concomitant]
     Dosage: 20 MG, DAILY
  7. MEGA-VITA [Concomitant]

REACTIONS (7)
  - Irritability [Unknown]
  - Anaemia [Unknown]
  - Fatigue [Unknown]
  - Cough [Unknown]
  - Weight decreased [Unknown]
  - Malaise [Unknown]
  - Decreased appetite [Unknown]
